FAERS Safety Report 10005502 (Version 1)
Quarter: 2014Q1

REPORT INFORMATION
  Report Type: Spontaneous
  Country: US (occurrence: US)
  Receive Date: 20140313
  Receipt Date: 20140313
  Transmission Date: 20141002
  Serious: Yes (Hospitalization)
  Sender: FDA-Public Use
  Company Number: US-ROCHE-1364629

PATIENT
  Sex: Female

DRUGS (14)
  1. XOLAIR [Suspect]
     Indication: ASTHMA
     Route: 058
     Dates: start: 201110
  2. ALBUTEROL [Concomitant]
  3. ALLEGRA [Concomitant]
  4. CIPRO [Concomitant]
  5. FLONASE [Concomitant]
  6. HYDROXYZINE [Concomitant]
  7. IPRATROPIUM BROMIDE [Concomitant]
     Dosage: NEBULIZER TREATMENT
     Route: 065
  8. SINGULAIR [Concomitant]
  9. NEXIUM [Concomitant]
  10. NORVASC [Concomitant]
  11. SYMBICORT [Concomitant]
  12. VENTOLIN [Concomitant]
  13. TESSALON PERLE [Concomitant]
  14. TUSSIN [Concomitant]

REACTIONS (2)
  - Asthma [Unknown]
  - Sinusitis [Unknown]
